FAERS Safety Report 10501972 (Version 1)
Quarter: 2014Q4

REPORT INFORMATION
  Report Type: Spontaneous
  Country: IT (occurrence: IT)
  Receive Date: 20141007
  Receipt Date: 20141007
  Transmission Date: 20150528
  Serious: Yes (Other)
  Sender: FDA-Public Use
  Company Number: PHHY2014IT128330

PATIENT
  Age: 9 Year
  Sex: Female

DRUGS (4)
  1. ATOMOXETINE [Suspect]
     Active Substance: ATOMOXETINE
     Indication: ATTENTION DEFICIT/HYPERACTIVITY DISORDER
     Dosage: 10 MG, QD
     Dates: start: 200710
  2. ATOMOXETINE [Suspect]
     Active Substance: ATOMOXETINE
     Indication: OPPOSITIONAL DEFIANT DISORDER
     Dosage: 25 MG, QD
  3. ATOMOXETINE [Suspect]
     Active Substance: ATOMOXETINE
     Dosage: 18 MG, QD
  4. ATOMOXETINE [Suspect]
     Active Substance: ATOMOXETINE
     Dosage: 10 MG, QD

REACTIONS (10)
  - Self-injurious ideation [Unknown]
  - Mood swings [Unknown]
  - Anxiety [Unknown]
  - Asthenia [Unknown]
  - Depressed mood [Unknown]
  - Negative thoughts [Unknown]
  - Self esteem decreased [Unknown]
  - Depression [Unknown]
  - Suicidal ideation [Unknown]
  - Feeling guilty [Unknown]

NARRATIVE: CASE EVENT DATE: 200804
